FAERS Safety Report 4641421-1 (Version None)
Quarter: 2005Q2

REPORT INFORMATION
  Report Type: 
  Country: None (occurrence: None)
  Receive Date: 20050420
  Receipt Date: 20050420
  Transmission Date: 20051028
  Serious: Yes (Hospitalization)
  Sender: FDA-Public Use
  Company Number: None

PATIENT
  Sex: Male
  Weight: 76.6579 kg

DRUGS (17)
  1. TAXOL [Suspect]
     Indication: PROSTATE CANCER METASTATIC
     Dosage: 180MG  QWK X 3 INTRAVENOUS
     Route: 042
     Dates: start: 20050310, end: 20050414
  2. PARAPLATIN [Suspect]
     Indication: PROSTATE CANCER METASTATIC
     Dosage: 450MG  Q 4 WKS  INTRAVENOUS
     Route: 042
     Dates: start: 20050310, end: 20050414
  3. LORTAB [Concomitant]
  4. MICARDIS [Concomitant]
  5. LIPITOR [Concomitant]
  6. FLOMAX [Concomitant]
  7. ASPIRIN [Concomitant]
  8. MS CONTIN [Concomitant]
  9. SENOKOT [Concomitant]
  10. COMPAZINE [Concomitant]
  11. LUPRON [Concomitant]
  12. ALOXI [Concomitant]
  13. DECADRON [Concomitant]
  14. BENADRYL [Concomitant]
  15. TAGAMET [Concomitant]
  16. CELEBREX [Concomitant]
  17. M.V.I. [Concomitant]

REACTIONS (2)
  - SMALL INTESTINAL OBSTRUCTION [None]
  - SOMNOLENCE [None]
